FAERS Safety Report 10784354 (Version 1)
Quarter: 2015Q1

REPORT INFORMATION
  Report Type: Spontaneous
  Country: US (occurrence: None)
  Receive Date: 20150209
  Receipt Date: 20150209
  Transmission Date: 20150721
  Serious: No
  Sender: FDA-Public Use
  Company Number: None

PATIENT
  Age: 55 Year
  Sex: Female
  Weight: 104.33 kg

DRUGS (4)
  1. DULOXETINE 30MG [Suspect]
     Active Substance: DULOXETINE
     Indication: ANXIETY
     Dosage: 1 CAPSULE PER DAY ONCE DAILY TAKEN BY MOUTH
     Route: 048
  2. DULOXETINE 30MG [Suspect]
     Active Substance: DULOXETINE
     Indication: DEPRESSION
     Dosage: 1 CAPSULE PER DAY ONCE DAILY TAKEN BY MOUTH
     Route: 048
  3. DULOXETINE 30MG [Suspect]
     Active Substance: DULOXETINE
     Indication: IRRITABILITY
     Dosage: 1 CAPSULE PER DAY ONCE DAILY TAKEN BY MOUTH
     Route: 048
  4. DULOXETINE 30MG [Suspect]
     Active Substance: DULOXETINE
     Indication: ARTHRALGIA
     Dosage: 1 CAPSULE PER DAY ONCE DAILY TAKEN BY MOUTH
     Route: 048

REACTIONS (7)
  - Anxiety [None]
  - Drug ineffective [None]
  - Irritability [None]
  - Headache [None]
  - Product substitution issue [None]
  - Arthralgia [None]
  - Condition aggravated [None]

NARRATIVE: CASE EVENT DATE: 20150202
